FAERS Safety Report 22004070 (Version 1)
Quarter: 2023Q1

REPORT INFORMATION
  Report Type: Spontaneous
  Country: FR (occurrence: FR)
  Receive Date: 20230217
  Receipt Date: 20230217
  Transmission Date: 20230418
  Serious: Yes (Hospitalization)
  Sender: FDA-Public Use
  Company Number: None

PATIENT
  Age: 21 Year
  Sex: Female

DRUGS (4)
  1. VALIUM [Suspect]
     Active Substance: DIAZEPAM
     Indication: Product used for unknown indication
     Dosage: 10 A 30 CP A LA FOIS
     Route: 050
  2. COCAINE [Suspect]
     Active Substance: COCAINE
     Indication: Product used for unknown indication
     Dosage: 1G PAR JOUR MINIMUM POUVANT ALLER JUSQU^ 5G EN CONTEXTE FESTIF (PRISE TOUT AU LONG DE LA NUIT AVE...
     Route: 050
  3. CANNABIS SATIVA SUBSP. INDICA TOP [Suspect]
     Active Substance: CANNABIS SATIVA SUBSP. INDICA TOP
     Indication: Product used for unknown indication
     Dosage: DE 1 A 20 JOINTS/ SOIREE
     Route: 050
  4. BUTYROLACTONE [Suspect]
     Active Substance: BUTYROLACTONE
     Indication: Product used for unknown indication

REACTIONS (4)
  - Drug abuse [Recovering/Resolving]
  - Drug dependence [Recovering/Resolving]
  - Drug dependence [Recovering/Resolving]
  - Altered state of consciousness [Recovered/Resolved]
